FAERS Safety Report 15106824 (Version 2)
Quarter: 2019Q1

REPORT INFORMATION
  Report Type: Spontaneous
  Country: US (occurrence: US)
  Receive Date: 20180704
  Receipt Date: 20190205
  Transmission Date: 20190417
  Serious: Yes (Other)
  Sender: FDA-Public Use
  Company Number: US-SA-2018SA173724

PATIENT
  Age: 58 Year
  Sex: Female
  Weight: 92 kg

DRUGS (8)
  1. HYDROCHLOROTHIAZIDE. [Concomitant]
     Active Substance: HYDROCHLOROTHIAZIDE
     Dosage: UNK UNK, UNK
     Route: 065
     Dates: start: 19960101
  2. PARAPLATIN [Concomitant]
     Active Substance: CARBOPLATIN
     Indication: CHEMOTHERAPY
     Dosage: UNK
     Route: 065
  3. TAXOTERE [Suspect]
     Active Substance: DOCETAXEL
     Indication: BREAST CANCER FEMALE
     Dosage: 145-150 MG, Q3W
     Route: 042
     Dates: start: 20090730, end: 20090730
  4. TAXOTERE [Suspect]
     Active Substance: DOCETAXEL
     Dosage: 145-150 MG, Q3W
     Route: 042
     Dates: start: 20091112, end: 20091112
  5. HERCEPTIN [Concomitant]
     Active Substance: TRASTUZUMAB
     Indication: CHEMOTHERAPY
     Dosage: UNK
     Route: 065
  6. TYLENOL [Concomitant]
     Active Substance: ACETAMINOPHEN
     Dosage: UNK
     Route: 048
  7. DECADRON [DEXAMETHASONE SODIUM PHOSPHATE] [Concomitant]
     Dosage: UNK
     Route: 030
  8. LORTAB [LORATADINE] [Concomitant]
     Active Substance: LORATADINE
     Dosage: UNK
     Route: 065
     Dates: start: 19960101

REACTIONS (2)
  - Psychological trauma [Unknown]
  - Alopecia [Recovering/Resolving]

NARRATIVE: CASE EVENT DATE: 20090830
